FAERS Safety Report 7521996-5 (Version None)
Quarter: 2011Q2

REPORT INFORMATION
  Report Type: 
  Country: None (occurrence: None)
  Receive Date: 20110603
  Receipt Date: 20110524
  Transmission Date: 20111010
  Serious: Yes (Death)
  Sender: FDA-Public Use
  Company Number: US-CELGENEUS-163-21880-11053257

PATIENT
  Age: 92 Year
  Sex: Male

DRUGS (8)
  1. REVLIMID [Suspect]
     Indication: MYELOPROLIFERATIVE DISORDER
     Dosage: 5 MILLIGRAM
     Route: 048
     Dates: start: 20100901, end: 20101101
  2. NEUPOGEN [Concomitant]
     Route: 065
  3. IPRATROPIUM BROMIDE [Concomitant]
     Route: 065
  4. SENNOSIDES [Concomitant]
     Route: 065
  5. REVLIMID [Suspect]
     Dosage: 10 MILLIGRAM
     Route: 048
     Dates: start: 20101101
  6. MORPHINE [Concomitant]
     Route: 065
  7. DEFERASIROX [Concomitant]
     Route: 065
  8. LEVALBUTEROL HCL [Concomitant]
     Route: 065

REACTIONS (1)
  - DEATH [None]
